FAERS Safety Report 13719782 (Version 1)
Quarter: 2017Q3

REPORT INFORMATION
  Report Type: Spontaneous
  Country: JP (occurrence: JP)
  Receive Date: 20170705
  Receipt Date: 20170705
  Transmission Date: 20171127
  Serious: Yes (Other)
  Sender: FDA-Public Use
  Company Number: PHJP2017JP020955

PATIENT
  Age: 53 Year
  Sex: Male

DRUGS (1)
  1. AMANTADINE. [Suspect]
     Active Substance: AMANTADINE HYDROCHLORIDE
     Indication: APATHY
     Dosage: UNK
     Route: 048

REACTIONS (4)
  - Myoclonus [Recovering/Resolving]
  - Hallucination [Recovering/Resolving]
  - Toxicity to various agents [Recovered/Resolved]
  - Product use in unapproved indication [Unknown]
